FAERS Safety Report 5910411-0 (Version None)
Quarter: 2008Q4

REPORT INFORMATION
  Report Type: 
  Country: None (occurrence: None)
  Receive Date: 20081007
  Receipt Date: 20081001
  Transmission Date: 20090506
  Serious: Yes (Hospitalization, Other)
  Sender: FDA-Public Use
  Company Number: US-ELI_LILLY_AND_COMPANY-US200810000453

PATIENT
  Sex: Female

DRUGS (2)
  1. HUMALOG [Suspect]
     Indication: DIABETES MELLITUS
     Dosage: UNK, UNK
     Dates: start: 20080601
  2. HUMULIN N [Suspect]
     Dosage: UNK, UNK
     Dates: start: 20080901, end: 20080901

REACTIONS (9)
  - ANXIETY [None]
  - BLOOD GLUCOSE INCREASED [None]
  - CARDIAC FAILURE CONGESTIVE [None]
  - CATARACT [None]
  - CHEST PAIN [None]
  - DYSPNOEA [None]
  - LOWER RESPIRATORY TRACT INFECTION [None]
  - PARAESTHESIA [None]
  - PHARYNGITIS STREPTOCOCCAL [None]
